FAERS Safety Report 16765422 (Version 4)
Quarter: 2020Q1

REPORT INFORMATION
  Report Type: Report from Study
  Country: ES (occurrence: ES)
  Receive Date: 20190903
  Receipt Date: 20200204
  Transmission Date: 20200409
  Serious: Yes (Other)
  Sender: FDA-Public Use
  Company Number: ES-AUROBINDO-AUR-APL-2019-055867

PATIENT
  Age: 44 Year
  Sex: Male

DRUGS (8)
  1. OLANZAPINE. [Suspect]
     Active Substance: OLANZAPINE
     Dosage: 25 MILLIGRAM, ONCE A DAY
     Route: 065
  2. CLONAZEPAM. [Suspect]
     Active Substance: CLONAZEPAM
     Dosage: 4 MILLIGRAM, DAILY (AFTER 7 YEARS)
     Route: 065
  3. OLANZAPINE. [Suspect]
     Active Substance: OLANZAPINE
     Indication: OBSESSIVE-COMPULSIVE DISORDER
     Dosage: 20 MILLIGRAM, ONCE A DAY (AFTER 7 YEARS)
     Route: 065
  4. CLONAZEPAM. [Suspect]
     Active Substance: CLONAZEPAM
     Indication: OBSESSIVE-COMPULSIVE DISORDER
     Dosage: 2 MILLIGRAM, ONCE A DAY
     Route: 065
  5. LITHIUM. [Suspect]
     Active Substance: LITHIUM
     Indication: OBSESSIVE-COMPULSIVE DISORDER
     Dosage: 1200 MILLIGRAM, ONCE A DAY
     Route: 065
  6. FLUOXETINE [Suspect]
     Active Substance: FLUOXETINE HYDROCHLORIDE
     Indication: OBSESSIVE-COMPULSIVE DISORDER
     Dosage: 80 MILLIGRAM, ONCE A DAY  (AFTER 7 YEARS)
     Route: 065
  7. CLOMIPRAMINE [Suspect]
     Active Substance: CLOMIPRAMINE
     Indication: OBSESSIVE-COMPULSIVE DISORDER
     Dosage: 75 MILLIGRAM, ONCE A DAY
     Route: 065
  8. CLOMIPRAMINE [Suspect]
     Active Substance: CLOMIPRAMINE
     Dosage: 125 MILLIGRAM, DAILY (DOSE INCREASED)
     Route: 065

REACTIONS (7)
  - Cardiotoxicity [Unknown]
  - Anxiety [Unknown]
  - Arrhythmia [Unknown]
  - Acquired gene mutation [Unknown]
  - Tremor [Unknown]
  - Long QT syndrome [Unknown]
  - Electrocardiogram QT prolonged [Unknown]
